FAERS Safety Report 9420867 (Version 1)
Quarter: 2013Q3

REPORT INFORMATION
  Report Type: Spontaneous
  Country: US (occurrence: US)
  Receive Date: 20130725
  Receipt Date: 20130725
  Transmission Date: 20140515
  Serious: No
  Sender: FDA-Public Use
  Company Number: US-ABBOTT-13P-163-1074884-00

PATIENT
  Age: 74 Year
  Sex: Female
  Weight: 68.1 kg

DRUGS (5)
  1. SYNTHROID [Suspect]
     Indication: GOITRE
  2. LABETALOL [Interacting]
     Indication: HYPERTENSION
  3. NORVASC [Interacting]
     Indication: HYPERTENSION
  4. EFFEXOR [Concomitant]
     Indication: PRODUCT USED FOR UNKNOWN INDICATION
  5. TEGRETOL [Concomitant]
     Indication: PRODUCT USED FOR UNKNOWN INDICATION

REACTIONS (2)
  - Stomatitis [Not Recovered/Not Resolved]
  - Throat irritation [Not Recovered/Not Resolved]
